FAERS Safety Report 8520513-0 (Version None)
Quarter: 2012Q3

REPORT INFORMATION
  Report Type: 
  Country: None (occurrence: None)
  Receive Date: 20120719
  Receipt Date: 20120716
  Transmission Date: 20120928
  Serious: Yes (Hospitalization)
  Sender: FDA-Public Use
  Company Number: CN-SANOFI-AVENTIS-2012SA050252

PATIENT
  Age: 59 Year
  Sex: Male

DRUGS (2)
  1. OXALIPLATIN [Suspect]
     Route: 041
     Dates: start: 20120525
  2. OXALIPLATIN [Suspect]
     Route: 041
     Dates: start: 20120525

REACTIONS (1)
  - VENTRICULAR EXTRASYSTOLES [None]
